FAERS Safety Report 5478254-2 (Version None)
Quarter: 2007Q4

REPORT INFORMATION
  Report Type: 
  Country: None (occurrence: None)
  Receive Date: 20071005
  Receipt Date: 20070620
  Transmission Date: 20080405
  Serious: No
  Sender: FDA-Public Use
  Company Number: US-BRISTOL-MYERS SQUIBB COMPANY-13820147

PATIENT
  Age: 6 Decade
  Sex: Male

DRUGS (3)
  1. AVAPRO [Suspect]
     Indication: HYPERTENSION
     Route: 048
     Dates: start: 20070606
  2. WARFARIN SODIUM [Concomitant]
  3. SIMVASTATIN [Concomitant]

REACTIONS (1)
  - FAECES DISCOLOURED [None]
